FAERS Safety Report 6100857-2 (Version None)
Quarter: 2009Q1

REPORT INFORMATION
  Report Type: 
  Country: None (occurrence: None)
  Receive Date: 20090223
  Receipt Date: 20090211
  Transmission Date: 20090719
  Serious: Yes (Other)
  Sender: FDA-Public Use
  Company Number: CHPA2009US04179

PATIENT
  Age: 7 Year
  Sex: Male

DRUGS (1)
  1. TRIAMINIC CHEST + NASAL CONGESTION (NCH)(GUAIFENESIN, PHENYLEPHRINE HY [Suspect]
     Dosage: ORAL
     Route: 048
     Dates: start: 20080101, end: 20080101

REACTIONS (1)
  - EPILEPSY [None]
